FAERS Safety Report 11852372 (Version 2)
Quarter: 2016Q1

REPORT INFORMATION
  Report Type: Report from Study
  Country: US (occurrence: US)
  Receive Date: 20151218
  Receipt Date: 20160108
  Transmission Date: 20160526
  Serious: Yes (Other)
  Sender: FDA-Public Use
  Company Number: US-009507513-1512USA009950

PATIENT
  Age: 1 Month
  Sex: Female

DRUGS (3)
  1. TIMOLOL MALEATE. [Suspect]
     Active Substance: TIMOLOL MALEATE
     Indication: INTRAOCULAR PRESSURE TEST ABNORMAL
     Dosage: 0.25% ONCE A DAY FOR THE LEFT EYE
     Route: 047
  2. ACETAZOLAMIDE. [Suspect]
     Active Substance: ACETAZOLAMIDE
     Indication: INTRAOCULAR PRESSURE TEST ABNORMAL
     Dosage: 30 MG TWICE A DAY
     Route: 048
  3. DEXAMETHASONE (+) TOBRAMYCIN [Suspect]
     Active Substance: DEXAMETHASONE\TOBRAMYCIN
     Indication: DACRYOSTENOSIS CONGENITAL
     Dosage: TO THE LEFT EYE (2 IN 1 D)
     Route: 061

REACTIONS (2)
  - Glaucoma [Recovered/Resolved]
  - Drug ineffective [Unknown]
